FAERS Safety Report 16611978 (Version 1)
Quarter: 2019Q3

REPORT INFORMATION
  Report Type: Spontaneous
  Country: DE (occurrence: DE)
  Receive Date: 20190722
  Receipt Date: 20190722
  Transmission Date: 20191004
  Serious: Yes (Death, Hospitalization)
  Sender: FDA-Public Use
  Company Number: DE-HQ SPECIALTY-DE-2019INT000175

PATIENT
  Age: 33 Year
  Sex: Male

DRUGS (3)
  1. CISPLATIN. [Suspect]
     Active Substance: CISPLATIN
     Indication: CHOLANGIOCARCINOMA
     Dosage: 25 MG/M2, UNK
  2. GEMCITABINE. [Suspect]
     Active Substance: GEMCITABINE
     Dosage: 250 MG/M2, DOSE REDUCTION OF 50% DUE TO BILIRUBINEMIA PRIOR TO TREATMENT INITIATION
  3. GEMCITABINE. [Suspect]
     Active Substance: GEMCITABINE
     Indication: CHOLANGIOCARCINOMA
     Dosage: 500 MG/M2, UNK

REACTIONS (2)
  - Febrile neutropenia [Fatal]
  - Bone marrow failure [Fatal]
